FAERS Safety Report 10449534 (Version 2)
Quarter: 2014Q3

REPORT INFORMATION
  Report Type: Report from Study
  Country: JP (occurrence: JP)
  Receive Date: 20140912
  Receipt Date: 20140926
  Transmission Date: 20150326
  Serious: Yes (Other)
  Sender: FDA-Public Use
  Company Number: JP-SA-2014SA123643

PATIENT
  Age: 68 Year
  Sex: Male
  Weight: 56.5 kg

DRUGS (29)
  1. PRANOPROFEN [Concomitant]
     Active Substance: PRANOPROFEN
  2. HACHIAZULE [Concomitant]
     Dates: start: 20140325
  3. CALONAL [Concomitant]
     Active Substance: ACETAMINOPHEN
     Indication: PAIN
     Route: 048
     Dates: start: 20140701
  4. 5-FU [Suspect]
     Active Substance: FLUOROURACIL
     Indication: COLORECTAL CANCER METASTATIC
     Route: 040
     Dates: start: 20131210, end: 20131210
  5. PYDOXAL [Concomitant]
     Active Substance: PYRIDOXAL
     Indication: NEUROPATHY PERIPHERAL
     Route: 048
     Dates: start: 2012
  6. MAGMITT [Concomitant]
     Active Substance: MAGNESIUM OXIDE
     Indication: CONSTIPATION
     Route: 048
     Dates: start: 2011
  7. TRANEXAMIC ACID. [Concomitant]
     Active Substance: TRANEXAMIC ACID
     Indication: HAEMORRHAGE PROPHYLAXIS
     Route: 048
     Dates: start: 20131226
  8. IRINOTECAN [Suspect]
     Active Substance: IRINOTECAN
     Indication: COLORECTAL CANCER METASTATIC
     Route: 041
     Dates: start: 20140812, end: 20140812
  9. LEUCOVORIN [Suspect]
     Active Substance: LEUCOVORIN
     Indication: COLORECTAL CANCER METASTATIC
     Route: 041
     Dates: start: 20140812, end: 20140812
  10. BENZETHONIUM CHLORIDE [Concomitant]
     Active Substance: BENZETHONIUM CHLORIDE
     Dates: start: 20131209
  11. IRINOTECAN [Suspect]
     Active Substance: IRINOTECAN
     Indication: COLORECTAL CANCER METASTATIC
     Route: 041
     Dates: start: 20131210, end: 20131210
  12. 5-FU [Suspect]
     Active Substance: FLUOROURACIL
     Indication: COLORECTAL CANCER METASTATIC
     Route: 041
     Dates: start: 20140812, end: 20140814
  13. HACHIAZULE [Concomitant]
     Dates: start: 20131205
  14. AFLIBERCEPT [Suspect]
     Active Substance: AFLIBERCEPT
     Indication: COLORECTAL CANCER METASTATIC
     Route: 041
     Dates: start: 20131210, end: 20131210
  15. NEXIUM [Concomitant]
     Active Substance: ESOMEPRAZOLE MAGNESIUM
     Indication: GASTRITIS PROPHYLAXIS
     Route: 048
     Dates: start: 20131112
  16. MUCODYNE [Concomitant]
     Active Substance: CARBOCYSTEINE
     Indication: SPUTUM RETENTION
     Route: 048
     Dates: start: 2011
  17. LOXONIN [Concomitant]
     Active Substance: LOXOPROFEN SODIUM
     Indication: PAIN
     Route: 048
     Dates: start: 20140117
  18. NORVASC [Concomitant]
     Active Substance: AMLODIPINE BESYLATE
     Indication: HYPERTENSION
     Route: 048
     Dates: start: 20140325
  19. AFLIBERCEPT [Suspect]
     Active Substance: AFLIBERCEPT
     Indication: COLORECTAL CANCER METASTATIC
     Route: 041
     Dates: start: 20140812, end: 20140812
  20. 5-FU [Suspect]
     Active Substance: FLUOROURACIL
     Indication: COLORECTAL CANCER METASTATIC
     Route: 041
     Dates: start: 20131210
  21. 5-FU [Suspect]
     Active Substance: FLUOROURACIL
     Indication: COLORECTAL CANCER METASTATIC
     Route: 040
     Dates: start: 20140812, end: 20140812
  22. COSOPT [Concomitant]
     Active Substance: DORZOLAMIDE HYDROCHLORIDE\TIMOLOL MALEATE
  23. MICARDIS [Concomitant]
     Active Substance: TELMISARTAN
     Indication: HYPERTENSION
     Route: 048
     Dates: start: 20131228
  24. BETAMETHASONE VALERATE. [Concomitant]
     Active Substance: BETAMETHASONE VALERATE
     Dates: start: 20140107
  25. LEUCOVORIN [Suspect]
     Active Substance: LEUCOVORIN
     Indication: COLORECTAL CANCER METASTATIC
     Route: 041
     Dates: start: 20131210, end: 20131210
  26. LIVALO [Concomitant]
     Active Substance: PITAVASTATIN CALCIUM
     Indication: HYPERLIPIDAEMIA
     Route: 048
     Dates: start: 1991
  27. HIRUDOID [Concomitant]
     Active Substance: GLYCOSAMINOGLYCANS
     Dates: start: 20131205
  28. BROTIZOLAM [Concomitant]
     Active Substance: BROTIZOLAM
  29. POSTERISAN FORTE [Concomitant]
     Active Substance: LIDOCAINE
     Indication: HAEMORRHOIDS
     Route: 061
     Dates: start: 2011

REACTIONS (1)
  - Osteonecrosis of jaw [Not Recovered/Not Resolved]

NARRATIVE: CASE EVENT DATE: 20140901
